FAERS Safety Report 17927591 (Version 2)
Quarter: 2020Q2

REPORT INFORMATION
  Report Type: Spontaneous
  Country: JP (occurrence: JP)
  Receive Date: 20200622
  Receipt Date: 20200629
  Transmission Date: 20200714
  Serious: Yes (Other)
  Sender: FDA-Public Use
  Company Number: JP-SYNEX-T202002750

PATIENT
  Age: 1 Year
  Sex: Male
  Weight: 1 kg

DRUGS (7)
  1. INOFLO [Suspect]
     Active Substance: NITRIC OXIDE
     Dosage: 5 PPM, PER INHALATIONAL (10TH DAY OF THE TREATMENT)
     Route: 055
  2. DEXAMETHASONE. [Concomitant]
     Active Substance: DEXAMETHASONE
     Indication: NEWBORN PERSISTENT PULMONARY HYPERTENSION
     Dosage: UNK (MG/KG/DAY)
     Route: 065
  3. PREDNISOLONE. [Concomitant]
     Active Substance: PREDNISOLONE
     Indication: PRODUCT USED FOR UNKNOWN INDICATION
     Dosage: UNK (MG/KG/DAY)
     Route: 065
  4. INOFLO [Suspect]
     Active Substance: NITRIC OXIDE
     Dosage: 20 PPM, PER INHALATIONAL, THERAPY RESTARTED IN 7TH MONTH
     Route: 055
  5. INOFLO [Suspect]
     Active Substance: NITRIC OXIDE
     Indication: NEWBORN PERSISTENT PULMONARY HYPERTENSION
     Dosage: UNK, PER INHALATIONAL, 1ST TO 31ST DAY
     Route: 055
  6. HYDROCORTISONE. [Concomitant]
     Active Substance: HYDROCORTISONE
     Indication: PRODUCT USED FOR UNKNOWN INDICATION
     Dosage: UNK
     Route: 065
  7. INOFLO [Suspect]
     Active Substance: NITRIC OXIDE
     Dosage: 20 PPM, PER INHALATIONAL, RE-INITIATED IN 11TH MONTH
     Route: 055

REACTIONS (3)
  - Tracheomalacia [Unknown]
  - Staphylococcal infection [Unknown]
  - Product use issue [Unknown]
